FAERS Safety Report 4416105-5 (Version None)
Quarter: 2004Q3

REPORT INFORMATION
  Report Type: 
  Country: None (occurrence: None)
  Receive Date: 20040730
  Receipt Date: 20040723
  Transmission Date: 20050211
  Serious: Yes (Other)
  Sender: FDA-Public Use
  Company Number: 2003189700JP

PATIENT
  Age: 79 Year
  Sex: Female
  Weight: 40 kg

DRUGS (13)
  1. CABERGOLINE [Suspect]
     Indication: PARKINSON'S DISEASE
     Dosage: SEE IMAGE
     Route: 048
     Dates: start: 20020101
  2. CABERGOLINE [Suspect]
     Indication: PARKINSON'S DISEASE
     Dosage: SEE IMAGE
     Route: 048
     Dates: start: 20020213
  3. CABERGOLINE [Suspect]
     Indication: PARKINSON'S DISEASE
     Dosage: SEE IMAGE
     Route: 048
     Dates: start: 20020227
  4. MADOPAR (BENSERAZIDE HYDROCHLORIDE) [Concomitant]
  5. SELEGILINE HYDROCHLORIDE [Concomitant]
  6. NORVASC [Concomitant]
  7. ISOSORBIDE MONONITRATE [Concomitant]
  8. LANIRAPID (METILDIGOXIN) [Concomitant]
  9. ASPARA K (ASPARTATE POTASSIUM) [Concomitant]
  10. NEO DOPASTON [Concomitant]
  11. TORSEMIDE [Concomitant]
  12. RADONNA [Concomitant]
  13. LASIX [Concomitant]

REACTIONS (7)
  - CARDIAC FAILURE CONGESTIVE [None]
  - CARDIOMEGALY [None]
  - CHEST DISCOMFORT [None]
  - CHOKING [None]
  - FACE OEDEMA [None]
  - OEDEMA PERIPHERAL [None]
  - WEIGHT INCREASED [None]
